FAERS Safety Report 9726585 (Version 2)
Quarter: 2014Q1

REPORT INFORMATION
  Report Type: Spontaneous
  Country: JP (occurrence: None)
  Receive Date: 20131129
  Receipt Date: 20140107
  Transmission Date: 20141002
  Serious: Yes (Other)
  Sender: FDA-Public Use
  Company Number: SYM-2013-13167

PATIENT
  Age: 85 Year
  Sex: Male

DRUGS (1)
  1. METRONIDAZOLE [Suspect]
     Indication: PSEUDOMEMBRANOUS COLITIS

REACTIONS (4)
  - Encephalopathy [None]
  - Dysarthria [None]
  - Dyskinesia [None]
  - Pseudomembranous colitis [None]
